FAERS Safety Report 18314540 (Version 3)
Quarter: 2024Q3

REPORT INFORMATION
  Report Type: Spontaneous
  Country: US (occurrence: US)
  Receive Date: 20200925
  Receipt Date: 20240805
  Transmission Date: 20241017
  Serious: No
  Sender: Unknown Manufacturer
  Company Number: US-THERATECHNOLOGIES INC.-2020-THE-TES-000214

PATIENT

DRUGS (3)
  1. EGRIFTA SV [Suspect]
     Active Substance: TESAMORELIN ACETATE
     Indication: Lipodystrophy acquired
     Dosage: 2 MG, UNK
     Route: 058
  2. EGRIFTA SV [Suspect]
     Active Substance: TESAMORELIN ACETATE
     Dosage: 0.35 ML, QD
     Route: 065
     Dates: start: 202309
  3. EGRIFTA [Suspect]
     Active Substance: TESAMORELIN ACETATE
     Indication: Lipodystrophy acquired
     Dosage: 1 MG, UNK
     Route: 058

REACTIONS (6)
  - Nausea [Recovered/Resolved]
  - Tremor [Unknown]
  - Cold sweat [Recovered/Resolved]
  - Nausea [Recovered/Resolved]
  - Pruritus [Recovered/Resolved]
  - Injection site rash [Recovered/Resolved]

NARRATIVE: CASE EVENT DATE: 20200915
